FAERS Safety Report 25456085 (Version 1)
Quarter: 2025Q2

REPORT INFORMATION
  Report Type: Spontaneous
  Country: FR (occurrence: FR)
  Receive Date: 20250619
  Receipt Date: 20250619
  Transmission Date: 20250716
  Serious: Yes (Other)
  Sender: B BRAUN
  Company Number: FR-B.Braun Medical Inc.-2179012

PATIENT
  Age: 63 Year
  Sex: Male
  Weight: 113.5 kg

DRUGS (11)
  1. ACETAMINOPHEN [Suspect]
     Active Substance: ACETAMINOPHEN
     Indication: Pain
  2. PROPOFOL [Suspect]
     Active Substance: PROPOFOL
  3. MOVICOL [Suspect]
     Active Substance: POLYETHYLENE GLYCOL 3350\POTASSIUM CHLORIDE\SODIUM BICARBONATE\SODIUM CHLORIDE
  4. NICARDIPINE HYDROCHLORIDE [Suspect]
     Active Substance: NICARDIPINE HYDROCHLORIDE
  5. SUFENTANIL [Suspect]
     Active Substance: SUFENTANIL
  6. ASPIRIN LYSINE [Suspect]
     Active Substance: ASPIRIN LYSINE
  7. AMOXICILLIN [Suspect]
     Active Substance: AMOXICILLIN
  8. TINZAPARIN SODIUM [Suspect]
     Active Substance: TINZAPARIN SODIUM
  9. LEVETIRACETAM [Suspect]
     Active Substance: LEVETIRACETAM
  10. VIMPAT [Suspect]
     Active Substance: LACOSAMIDE
  11. CEFAZOLIN SODIUM [Suspect]
     Active Substance: CEFAZOLIN SODIUM

REACTIONS (1)
  - Atrioventricular block complete [Recovered/Resolved]
